FAERS Safety Report 16216828 (Version 1)
Quarter: 2019Q2

REPORT INFORMATION
  Report Type: Spontaneous
  Country: CN (occurrence: CN)
  Receive Date: 20190419
  Receipt Date: 20190419
  Transmission Date: 20190711
  Serious: Yes (Other)
  Sender: FDA-Public Use
  Company Number: CN-BAYER-2019-073527

PATIENT
  Age: 48 Year
  Sex: Male
  Weight: 63 kg

DRUGS (4)
  1. KETOTIFEN [Concomitant]
     Active Substance: KETOTIFEN
  2. AVELOX [Suspect]
     Active Substance: MOXIFLOXACIN HYDROCHLORIDE
     Indication: LUNG INFECTION
     Dosage: 0.4 G, QD
     Route: 041
     Dates: start: 20190326, end: 20190328
  3. FUDOSTEINE [Concomitant]
     Active Substance: FUDOSTEINE
  4. NO DRUG NAME [Concomitant]

REACTIONS (3)
  - Aspartate aminotransferase increased [Recovering/Resolving]
  - Blood creatine phosphokinase MB increased [Recovering/Resolving]
  - Blood creatine phosphokinase increased [Recovering/Resolving]

NARRATIVE: CASE EVENT DATE: 20190328
